FAERS Safety Report 5480986-7 (Version None)
Quarter: 2007Q4

REPORT INFORMATION
  Report Type: 
  Country: None (occurrence: None)
  Receive Date: 20071004
  Receipt Date: 20070925
  Transmission Date: 20080405
  Serious: Yes (Other)
  Sender: FDA-Public Use
  Company Number: 2007SP019526

PATIENT
  Age: 72 Year
  Sex: Male
  Weight: 57 kg

DRUGS (17)
  1. TEMODAL [Suspect]
     Indication: GLIOBLASTOMA MULTIFORME
     Dosage: 75 MG/M2;QD;PO , 150 MG/M2;QD;PO ,
     Route: 048
     Dates: start: 20061025, end: 20061205
  2. TEMODAL [Suspect]
     Indication: GLIOBLASTOMA MULTIFORME
     Dosage: 75 MG/M2;QD;PO , 150 MG/M2;QD;PO ,
     Route: 048
     Dates: start: 20070106, end: 20070110
  3. TEMODAL [Suspect]
     Indication: GLIOBLASTOMA MULTIFORME
     Dosage: 75 MG/M2;QD;PO , 150 MG/M2;QD;PO ,
     Route: 048
     Dates: start: 20070203, end: 20070207
  4. TEMODAL [Suspect]
     Indication: GLIOBLASTOMA MULTIFORME
     Dosage: 75 MG/M2;QD;PO , 150 MG/M2;QD;PO ,
     Route: 048
     Dates: end: 20070208
  5. TEMODAL [Suspect]
     Indication: GLIOBLASTOMA MULTIFORME
     Dosage: 75 MG/M2;QD;PO , 150 MG/M2;QD;PO ,
     Route: 048
     Dates: start: 20070317, end: 20070321
  6. TEMODAL [Suspect]
     Indication: GLIOBLASTOMA MULTIFORME
     Dosage: 75 MG/M2;QD;PO , 150 MG/M2;QD;PO ,
     Route: 048
     Dates: start: 20070421, end: 20070425
  7. BETAMETHASONE [Suspect]
     Indication: GLIOBLASTOMA MULTIFORME
     Dosage: PO
     Route: 048
     Dates: end: 20070208
  8. BAKTAR [Concomitant]
  9. ZOFRAN ZYDIS [Concomitant]
  10. PHENYTOIN SODIUM CAP [Concomitant]
  11. EVIPROSTAT [Concomitant]
  12. LENDORMIN [Concomitant]
  13. HALCION [Concomitant]
  14. SYMMETREL [Concomitant]
  15. FAMOTIDINE [Concomitant]
  16. MAGLAX [Concomitant]
  17. BIOFERMIN [Concomitant]

REACTIONS (1)
  - PULMONARY EMBOLISM [None]
